FAERS Safety Report 9350123 (Version 4)
Quarter: 2013Q3

REPORT INFORMATION
  Report Type: Report from Study
  Country: CO (occurrence: CO)
  Receive Date: 20130616
  Receipt Date: 20130801
  Transmission Date: 20140515
  Serious: Yes (Other)
  Sender: FDA-Public Use
  Company Number: CO-PFIZER INC-2013131438

PATIENT
  Age: 40 Year
  Sex: Female
  Weight: 93.9 kg

DRUGS (2)
  1. TOFACITINIB CITRATE [Suspect]
     Indication: PSORIASIS
     Dosage: 10 MG, 2X/DAY
     Route: 048
     Dates: start: 20121031, end: 20130422
  2. CYCLOFEM [Concomitant]
     Indication: CONTRACEPTION
     Dosage: LAST DOSE ON 27MAR2013, MONTHLY
     Route: 030
     Dates: start: 201207, end: 20130327

REACTIONS (1)
  - Abortion spontaneous [Recovered/Resolved]
